FAERS Safety Report 9695112 (Version 1)
Quarter: 2013Q4

REPORT INFORMATION
  Report Type: Report from Study
  Country: US (occurrence: US)
  Receive Date: 20131119
  Receipt Date: 20131119
  Transmission Date: 20140711
  Serious: Yes (Hospitalization)
  Sender: FDA-Public Use
  Company Number: PHEH2013US023971

PATIENT
  Sex: Male
  Weight: 68.27 kg

DRUGS (1)
  1. TOBRAMYCIN [Suspect]
     Dosage: 1 DF (1 AMPOULE), BID
     Dates: start: 20081121

REACTIONS (1)
  - Lung disorder [Recovered/Resolved]
